FAERS Safety Report 20077847 (Version 1)
Quarter: 2021Q4

REPORT INFORMATION
  Report Type: Spontaneous
  Country: DE (occurrence: DE)
  Receive Date: 20211116
  Receipt Date: 20211116
  Transmission Date: 20220303
  Serious: Yes (Hospitalization)
  Sender: FDA-Public Use
  Company Number: DE-ADRED-07217-02

PATIENT
  Age: 63 Year
  Sex: Male
  Weight: 71 kg

DRUGS (9)
  1. TORSEMIDE [Suspect]
     Active Substance: TORSEMIDE
     Indication: Product used for unknown indication
     Dosage: 20 MILLIGRAM, QD (20 MG, 1-0-0-0)
  2. PANTOPRAZOLE [Suspect]
     Active Substance: PANTOPRAZOLE
     Indication: Product used for unknown indication
     Dosage: 40 MILLIGRAM, BID (40 MG, 1-0-1-0)
  3. RISPERIDONE [Suspect]
     Active Substance: RISPERIDONE
     Indication: Product used for unknown indication
     Dosage: 0.5 MILLIGRAM, BID (0.5 MG, 1-0-1-0)
  4. SPIRONOLACTONE [Suspect]
     Active Substance: SPIRONOLACTONE
     Indication: Product used for unknown indication
     Dosage: 50 MILLIGRAM, QD (50 MG, 1-0-0-0)
  5. METAMIZOL                          /06276701/ [Concomitant]
     Dosage: 30 TROPFEN, 1-1-1-0
  6. ORNITHINE [Concomitant]
     Active Substance: ORNITHINE
     Dosage: 3000 MILLIGRAM, BID (3000 MG, 1-0-1-0)
  7. CARVEDILOL [Concomitant]
     Active Substance: CARVEDILOL
     Dosage: 3.125 MILLIGRAM, (SCHEMA)
  8. VITAMIN B12                        /00056201/ [Concomitant]
     Dosage: 200 MILLIGRAM, QD (2000 MG, 1-0-0-0)
  9. LACTULOSE [Concomitant]
     Active Substance: LACTULOSE
     Dosage: 667 GRAM, BID (667 G, 1-1-0-0)

REACTIONS (11)
  - Abdominal distension [Unknown]
  - Hyperkalaemia [Unknown]
  - Systemic infection [Unknown]
  - General physical health deterioration [Unknown]
  - Bradycardia [Unknown]
  - Condition aggravated [Unknown]
  - Anaemia [Unknown]
  - Hypotension [Unknown]
  - Hyponatraemia [Unknown]
  - Oedema peripheral [Unknown]
  - Acute abdomen [Unknown]
